FAERS Safety Report 8226320-0 (Version None)
Quarter: 2012Q1

REPORT INFORMATION
  Report Type: 
  Country: None (occurrence: None)
  Receive Date: 20120321
  Receipt Date: 20120312
  Transmission Date: 20120608
  Serious: Yes (Hospitalization)
  Sender: FDA-Public Use
  Company Number: US-ASTRAZENECA-2011SE27004

PATIENT
  Age: 77 Year
  Sex: Female

DRUGS (3)
  1. SYMBICORT [Suspect]
     Dosage: 2 PUFFS IN THE MORNING
     Route: 055
  2. NEXIUM [Concomitant]
     Route: 048
  3. SYMBICORT [Suspect]
     Dosage: 1 PUFF AT NIGHT
     Route: 055

REACTIONS (4)
  - PNEUMONIA PRIMARY ATYPICAL [None]
  - DYSPHONIA [None]
  - INCORRECT DOSE ADMINISTERED [None]
  - PNEUMONIA [None]
